FAERS Safety Report 15828046 (Version 1)
Quarter: 2019Q1

REPORT INFORMATION
  Report Type: Spontaneous
  Country: US (occurrence: US)
  Receive Date: 20190115
  Receipt Date: 20190115
  Transmission Date: 20190417
  Serious: No
  Sender: FDA-Public Use
  Company Number: US-ALLERGAN-1822696US

PATIENT
  Sex: Female

DRUGS (5)
  1. RESTASIS [Suspect]
     Active Substance: CYCLOSPORINE
     Indication: DRY EYE
     Dosage: UNK, BID
     Route: 047
     Dates: start: 201802
  2. OCUVITE [Concomitant]
     Active Substance: VITAMINS
     Indication: EYE DISORDER
     Dosage: UNK
  3. GENTEAL MILD [Concomitant]
     Active Substance: HYPROMELLOSE 2910 (4000 MPA.S)
     Indication: DRY EYE
     Dosage: UNK
     Route: 047
  4. FISH OIL [Concomitant]
     Active Substance: FISH OIL
     Indication: EYE DISORDER
     Dosage: UNK
  5. VITAMIN D [Concomitant]
     Active Substance: CHOLECALCIFEROL
     Indication: EYE DISORDER
     Dosage: UNK, PRN

REACTIONS (3)
  - Accidental exposure to product [Unknown]
  - Product dose omission [Unknown]
  - Product container issue [Unknown]
